FAERS Safety Report 16642826 (Version 1)
Quarter: 2019Q3

REPORT INFORMATION
  Report Type: Spontaneous
  Country: US (occurrence: US)
  Receive Date: 20190729
  Receipt Date: 20190729
  Transmission Date: 20191004
  Serious: No
  Sender: FDA-Public Use
  Company Number: US-PFIZER INC-2019320308

PATIENT
  Age: 70 Year
  Sex: Female
  Weight: 68.4 kg

DRUGS (1)
  1. CHANTIX [Suspect]
     Active Substance: VARENICLINE TARTRATE
     Indication: SMOKING CESSATION THERAPY
     Dosage: 1 MG, 2X/DAY (ONE IN THE MORNING AND ONE AT NIGHT)
     Dates: start: 2019

REACTIONS (1)
  - Weight increased [Unknown]
